FAERS Safety Report 25942089 (Version 1)
Quarter: 2025Q4

REPORT INFORMATION
  Report Type: Report from Study
  Country: US (occurrence: US)
  Receive Date: 20251020
  Receipt Date: 20251020
  Transmission Date: 20260118
  Serious: Yes (Hospitalization)
  Sender: ALEXION PHARMACEUTICALS
  Company Number: US-ASTRAZENECA-202510NAM015403US

PATIENT
  Sex: Female

DRUGS (2)
  1. BENRALIZUMAB [Suspect]
     Active Substance: BENRALIZUMAB
     Indication: Asthma
     Dosage: 30 MILLIGRAM, Q8W
     Dates: start: 202505
  2. BENRALIZUMAB [Suspect]
     Active Substance: BENRALIZUMAB

REACTIONS (4)
  - Dyspnoea [Unknown]
  - Oxygen saturation decreased [Unknown]
  - Cough [Unknown]
  - Upper-airway cough syndrome [Unknown]
